FAERS Safety Report 24862410 (Version 1)
Quarter: 2025Q1

REPORT INFORMATION
  Report Type: Spontaneous
  Country: GB (occurrence: GB)
  Receive Date: 20250120
  Receipt Date: 20250120
  Transmission Date: 20250409
  Serious: Yes (Life-Threatening, Hospitalization, Disabling, Other)
  Sender: HIKMA
  Company Number: GB-HIKMA PHARMACEUTICALS USA INC.-GB-H14001-25-00397

PATIENT
  Age: 59 Year
  Sex: Female

DRUGS (3)
  1. FLUOROURACIL [Suspect]
     Active Substance: FLUOROURACIL
     Indication: Metastatic neoplasm
     Route: 065
     Dates: end: 20241224
  2. IRINOTECAN [Suspect]
     Active Substance: IRINOTECAN
     Indication: Metastatic neoplasm
     Route: 065
     Dates: end: 20241224
  3. LEUCOVORIN CALCIUM [Concomitant]
     Active Substance: LEUCOVORIN CALCIUM
     Indication: Metastatic neoplasm
     Route: 065

REACTIONS (4)
  - Dilated cardiomyopathy [Not Recovered/Not Resolved]
  - Atrial tachycardia [Recovered/Resolved]
  - Acute pulmonary oedema [Unknown]
  - Mitral valve incompetence [Unknown]

NARRATIVE: CASE EVENT DATE: 20241224
